FAERS Safety Report 15460837 (Version 10)
Quarter: 2020Q2

REPORT INFORMATION
  Report Type: Spontaneous
  Country: US (occurrence: US)
  Receive Date: 20181003
  Receipt Date: 20200417
  Transmission Date: 20200713
  Serious: Yes (Life-Threatening, Hospitalization)
  Sender: FDA-Public Use
  Company Number: US-ACTELION-A-NJ2018-179523

PATIENT
  Age: 31 Year
  Sex: Female
  Weight: 78.01 kg

DRUGS (4)
  1. COUMADIN [Concomitant]
     Active Substance: WARFARIN SODIUM
  2. VELETRI [Suspect]
     Active Substance: EPOPROSTENOL
     Indication: PULMONARY ARTERIAL HYPERTENSION
     Dosage: 44 NG/KG, PER MIN
     Route: 042
  3. ADCIRCA [Concomitant]
     Active Substance: TADALAFIL
  4. VELETRI [Suspect]
     Active Substance: EPOPROSTENOL
     Dosage: 44 NG/KG, PER MIN
     Route: 042

REACTIONS (11)
  - Headache [Unknown]
  - Palpitations [Unknown]
  - Thrombosis [Unknown]
  - Complication associated with device [Unknown]
  - Catheter management [Unknown]
  - Pulmonary embolism [Unknown]
  - Catheter site thrombosis [Unknown]
  - Pyrexia [Unknown]
  - Vomiting [Unknown]
  - Chills [Unknown]
  - Device occlusion [Unknown]

NARRATIVE: CASE EVENT DATE: 201809
